FAERS Safety Report 8538703-X (Version None)
Quarter: 2012Q3

REPORT INFORMATION
  Report Type: 
  Country: None (occurrence: None)
  Receive Date: 20120718
  Receipt Date: 20120718
  Transmission Date: 20120928
  Serious: No
  Sender: FDA-Public Use
  Company Number: None

PATIENT
  Sex: Female
  Weight: 58.9676 kg

DRUGS (2)
  1. OMEPRAZOLE [Concomitant]
  2. ATELVIA [Suspect]
     Indication: OSTEOPENIA
     Dosage: 35 MG WEEKLY PER MOUTH 047
     Route: 048
     Dates: start: 20120622

REACTIONS (5)
  - ABASIA [None]
  - MYALGIA [None]
  - ABDOMINAL PAIN [None]
  - ARTHRALGIA [None]
  - PAIN [None]
